FAERS Safety Report 17476464 (Version 2)
Quarter: 2020Q4

REPORT INFORMATION
  Report Type: Spontaneous
  Country: CN (occurrence: CN)
  Receive Date: 20200228
  Receipt Date: 20201019
  Transmission Date: 20210113
  Serious: Yes (Death, Other)
  Sender: FDA-Public Use
  Company Number: CN-PFIZER INC-2020088109

PATIENT
  Age: 48 Year
  Sex: Female

DRUGS (1)
  1. IBRANCE [Suspect]
     Active Substance: PALBOCICLIB
     Indication: BREAST CANCER METASTATIC
     Dosage: 100 MG, CYCLIC ONCE A DAY FOR 21 DAYS) (1DF/DAY)
     Route: 048
     Dates: start: 20190516

REACTIONS (1)
  - Death [Fatal]

NARRATIVE: CASE EVENT DATE: 20200227
